FAERS Safety Report 13643042 (Version 8)
Quarter: 2018Q3

REPORT INFORMATION
  Report Type: Report from Study
  Country: US (occurrence: US)
  Receive Date: 20170612
  Receipt Date: 20180829
  Transmission Date: 20181010
  Serious: Yes (Other)
  Sender: FDA-Public Use
  Company Number: US-ALEXION PHARMACEUTICALS INC.-A201706417

PATIENT
  Sex: Female

DRUGS (1)
  1. SOLIRIS [Suspect]
     Active Substance: ECULIZUMAB
     Indication: HAEMOLYTIC URAEMIC SYNDROME
     Dosage: UNK
     Route: 042
     Dates: start: 201609

REACTIONS (14)
  - Deep vein thrombosis [Unknown]
  - Fatigue [Unknown]
  - Vomiting [Unknown]
  - Pain [Not Recovered/Not Resolved]
  - Abdominal pain [Unknown]
  - Muscle spasms [Unknown]
  - Vaginal haemorrhage [Unknown]
  - Malaise [Unknown]
  - Anaemia [Unknown]
  - Uterine leiomyoma [Recovered/Resolved]
  - Nausea [Unknown]
  - Nasopharyngitis [Unknown]
  - Discomfort [Unknown]
  - Constipation [Unknown]
